FAERS Safety Report 9007142 (Version 1)
Quarter: 2013Q1

REPORT INFORMATION
  Report Type: Spontaneous
  Country: US (occurrence: US)
  Receive Date: 20130110
  Receipt Date: 20130110
  Transmission Date: 20140127
  Serious: No
  Sender: FDA-Public Use
  Company Number: US-ASTRAZENECA-2012SE91965

PATIENT
  Age: 54 Year
  Sex: Female
  Weight: 113.4 kg

DRUGS (2)
  1. SYMBICORT [Suspect]
     Indication: ASTHMA
     Dosage: 160/4.5 MCG,2 PUFFS, 1 IN AM AND 1 IN THE PM
     Route: 055
  2. NEXIUM [Suspect]
     Indication: BARRETT^S OESOPHAGUS
     Dosage: DAILY
     Route: 048
     Dates: start: 2010

REACTIONS (2)
  - Bronchitis [Unknown]
  - Intentional drug misuse [Unknown]
